FAERS Safety Report 13622156 (Version 1)
Quarter: 2017Q2

REPORT INFORMATION
  Report Type: Spontaneous
  Country: US (occurrence: US)
  Receive Date: 20170607
  Receipt Date: 20170607
  Transmission Date: 20170830
  Serious: No
  Sender: FDA-Public Use
  Company Number: US-ROCHE-793015

PATIENT
  Age: 58 Year
  Sex: Male
  Weight: 63.5 kg

DRUGS (5)
  1. FUZEON [Suspect]
     Active Substance: ENFUVIRTIDE
     Indication: HIV INFECTION
     Route: 058
  2. TELAPREVIR [Concomitant]
     Active Substance: TELAPREVIR
     Route: 065
  3. INTERFERON ALFA-2A [Concomitant]
     Active Substance: INTERFERON ALFA-2A
     Route: 065
  4. RIBASPHERE [Concomitant]
     Active Substance: RIBAVIRIN
     Route: 065
  5. PEGASYS [Suspect]
     Active Substance: PEGINTERFERON ALFA-2A
     Indication: HEPATITIS C
     Dosage: THERAPY DATES NOT REPORTED
     Route: 058

REACTIONS (2)
  - Injection site vesicles [Unknown]
  - Anaemia [Unknown]

NARRATIVE: CASE EVENT DATE: 20110702
